FAERS Safety Report 12523318 (Version 1)
Quarter: 2016Q3

REPORT INFORMATION
  Report Type: Spontaneous
  Country: US (occurrence: US)
  Receive Date: 20160702
  Receipt Date: 20160702
  Transmission Date: 20161109
  Serious: Yes (Other)
  Sender: FDA-Public Use
  Company Number: US-TEVA-672278USA

PATIENT
  Age: 45 Year
  Sex: Female

DRUGS (3)
  1. ZECUITY [Suspect]
     Active Substance: SUMATRIPTAN SUCCINATE
     Dosage: #1
     Route: 062
     Dates: start: 201606, end: 201606
  2. ZECUITY [Suspect]
     Active Substance: SUMATRIPTAN SUCCINATE
     Dosage: #3
     Route: 062
     Dates: start: 201606, end: 201606
  3. ZECUITY [Suspect]
     Active Substance: SUMATRIPTAN SUCCINATE
     Dosage: #2
     Route: 062
     Dates: start: 201606, end: 201606

REACTIONS (3)
  - Application site burn [Unknown]
  - Application site rash [Unknown]
  - Application site pain [Unknown]

NARRATIVE: CASE EVENT DATE: 20160616
